FAERS Safety Report 5147065-X (Version None)
Quarter: 2006Q4

REPORT INFORMATION
  Report Type: 
  Country: None (occurrence: None)
  Receive Date: 20061102
  Receipt Date: 20061020
  Transmission Date: 20070319
  Serious: Yes (Other)
  Sender: FDA-Public Use
  Company Number: FABR-11605

PATIENT
  Age: 44 Year
  Sex: Male
  Weight: 56 kg

DRUGS (4)
  1. FABRAZYME [Suspect]
     Indication: FABRY'S DISEASE
     Dosage: 1 MG/KG Q2WKS IV
     Route: 042
     Dates: start: 20041208
  2. PREDNISONE TAB [Concomitant]
  3. PROGRAF [Concomitant]
  4. CELLCEPT [Concomitant]

REACTIONS (3)
  - CHRONIC ALLOGRAFT NEPHROPATHY [None]
  - GLOMERULAR FILTRATION RATE DECREASED [None]
  - RENAL FAILURE [None]
